FAERS Safety Report 6731251-9 (Version None)
Quarter: 2010Q2

REPORT INFORMATION
  Report Type: 
  Country: None (occurrence: None)
  Receive Date: 20100517
  Receipt Date: 20100517
  Transmission Date: 20101027
  Serious: Yes (Hospitalization)
  Sender: FDA-Public Use
  Company Number: None

PATIENT
  Sex: Female
  Weight: 79.5 kg

DRUGS (10)
  1. CISPLATIN [Suspect]
     Dosage: 95 MG
  2. DOXORUBICIN HCL [Suspect]
     Dosage: 85 MG
  3. TAXOL [Suspect]
     Dosage: 303 MG
  4. CITALOPRAM [Concomitant]
  5. GLIPIZIDE [Concomitant]
  6. LEVOTHYROXINE SODIUM [Concomitant]
  7. LIPITOR [Concomitant]
  8. METFORMIN HCL [Concomitant]
  9. NEOCLARITYN [Concomitant]
  10. TRICOR [Concomitant]

REACTIONS (28)
  - ABDOMINAL DISTENSION [None]
  - ACUTE RESPIRATORY DISTRESS SYNDROME [None]
  - ADENOVIRUS TEST POSITIVE [None]
  - AGITATION [None]
  - BRONCHOSCOPY ABNORMAL [None]
  - CEREBRAL INFARCTION [None]
  - CLOSTRIDIUM TEST POSITIVE [None]
  - CONSTIPATION [None]
  - CONVULSION [None]
  - DECREASED APPETITE [None]
  - DIARRHOEA [None]
  - FATIGUE [None]
  - GENERAL PHYSICAL HEALTH DETERIORATION [None]
  - HEMIPARESIS [None]
  - HYPONATRAEMIA [None]
  - HYPOXIA [None]
  - NAUSEA [None]
  - NEUTROPENIA [None]
  - PLEURAL EFFUSION [None]
  - PNEUMONIA [None]
  - RESPIRATORY FAILURE [None]
  - RHINITIS [None]
  - SEPTIC EMBOLUS [None]
  - SEPTIC SHOCK [None]
  - TACHYCARDIA [None]
  - URINARY TRACT INFECTION [None]
  - VAGINAL INFECTION [None]
  - VOMITING [None]
